FAERS Safety Report 19181301 (Version 1)
Quarter: 2021Q2

REPORT INFORMATION
  Report Type: Spontaneous
  Country: GB (occurrence: GB)
  Receive Date: 20210426
  Receipt Date: 20210426
  Transmission Date: 20210717
  Serious: Yes (Other)
  Sender: FDA-Public Use
  Company Number: GB-PFIZER INC-2021416175

PATIENT
  Age: 54 Year
  Sex: Female
  Weight: 73 kg

DRUGS (3)
  1. LATANOPROST PFIZER [Suspect]
     Active Substance: LATANOPROST
     Indication: COVID-19 IMMUNISATION
     Dosage: UNK
  2. TOZINAMERAN. [Suspect]
     Active Substance: TOZINAMERAN
     Indication: COVID-19 IMMUNISATION
     Dosage: SINGLE DOSE
     Route: 051
     Dates: start: 20210324, end: 20210324
  3. CANDESARTAN CILEXETIL. [Concomitant]
     Active Substance: CANDESARTAN CILEXETIL
     Dosage: UNK

REACTIONS (2)
  - Fatigue [Recovered/Resolved]
  - Myalgia [Recovered/Resolved]

NARRATIVE: CASE EVENT DATE: 20210324
